FAERS Safety Report 15268570 (Version 3)
Quarter: 2018Q3

REPORT INFORMATION
  Report Type: Spontaneous
  Country: DE (occurrence: DE)
  Receive Date: 20180812
  Receipt Date: 20180917
  Transmission Date: 20181010
  Serious: Yes (Life-Threatening)
  Sender: FDA-Public Use
  Company Number: PHHY2018DE070511

PATIENT
  Age: 21 Year
  Sex: Male

DRUGS (11)
  1. VENLAFAXINE [Suspect]
     Active Substance: VENLAFAXINE HYDROCHLORIDE
     Indication: PRODUCT USED FOR UNKNOWN INDICATION
     Dosage: 100 MG, QD
     Route: 048
     Dates: start: 20171128, end: 20171213
  2. LORAZEPAM. [Suspect]
     Active Substance: LORAZEPAM
     Dosage: 20 MG, UNK (ONCE FOR SUICIDE ATTEMPT)
     Route: 065
     Dates: start: 20171213, end: 20171213
  3. AMITRIPTYLINE [Suspect]
     Active Substance: AMITRIPTYLINE
     Indication: SUICIDE ATTEMPT
     Dosage: (100 MG QD + 1 G ONCE) (ONCE FOR SUICIDE ATTEMPT)
     Route: 048
     Dates: start: 20171213, end: 20171213
  4. LORAZEPAM. [Suspect]
     Active Substance: LORAZEPAM
     Indication: PRODUCT USED FOR UNKNOWN INDICATION
     Dosage: 3 MG, QD
     Route: 048
     Dates: start: 20171128, end: 20171213
  5. CHLORPROTHIXENE [Suspect]
     Active Substance: CHLORPROTHIXENE
     Dosage: 50 MG, QD
     Route: 048
     Dates: end: 20171213
  6. CHLORPROTHIXENE [Suspect]
     Active Substance: CHLORPROTHIXENE
     Indication: SUICIDE ATTEMPT
     Dosage: 250 MG, (ONCE FOR SUICIDE ATTEMPT)
     Route: 048
     Dates: start: 20171213, end: 20171213
  7. LORAZEPAM. [Suspect]
     Active Substance: LORAZEPAM
     Dosage: 0.5 MG, QD
     Route: 048
     Dates: start: 20171216
  8. PIPAMPERONE [Suspect]
     Active Substance: PIPAMPERONE
     Indication: SUICIDE ATTEMPT
     Dosage: 400 MG, QD (ONCE FOR SUICIDE ATTEMPT)
     Route: 048
     Dates: start: 20171213, end: 20171213
  9. CHLORPROTHIXENE [Suspect]
     Active Substance: CHLORPROTHIXENE
     Dosage: 50 MG, QD
     Route: 048
     Dates: start: 20171216
  10. AMITRIPTYLINE [Suspect]
     Active Substance: AMITRIPTYLINE
     Dosage: 50 MG, QD
     Route: 048
     Dates: start: 20171215
  11. CHLORPROTHIXENE [Suspect]
     Active Substance: CHLORPROTHIXENE
     Dosage: UNK (UNK WEEKS OF INTAKE)
     Route: 048

REACTIONS (2)
  - Intentional overdose [Unknown]
  - Suicide attempt [Recovered/Resolved]

NARRATIVE: CASE EVENT DATE: 20171213
